FAERS Safety Report 8612641-6 (Version None)
Quarter: 2012Q3

REPORT INFORMATION
  Report Type: 
  Country: None (occurrence: None)
  Receive Date: 20120822
  Receipt Date: 20110919
  Transmission Date: 20120928
  Serious: No
  Sender: FDA-Public Use
  Company Number: US-ASTRAZENECA-2011SE56375

PATIENT
  Age: 58 Year
  Sex: Male

DRUGS (13)
  1. ZESTRIL [Suspect]
     Route: 048
  2. VENTOLIN HFA [Concomitant]
  3. PRILOSEC [Suspect]
     Route: 048
  4. PRAVACHOL [Concomitant]
  5. COLACE PO [Concomitant]
     Route: 048
  6. SYMBICORT [Suspect]
     Dosage: 160/4.5 MCG
     Route: 055
  7. SPIRIVA [Concomitant]
     Route: 055
  8. PROVENTIL-HFA [Concomitant]
  9. HYDROCHLOROTHIAZIDE [Concomitant]
  10. HYTRIN [Concomitant]
  11. WELLBUTRIN [Concomitant]
  12. NORVASC [Concomitant]
  13. IRON PO [Concomitant]
     Route: 048

REACTIONS (4)
  - CHRONIC OBSTRUCTIVE PULMONARY DISEASE [None]
  - GASTROOESOPHAGEAL REFLUX DISEASE [None]
  - HYPERTENSION [None]
  - HYPERCHOLESTEROLAEMIA [None]
